FAERS Safety Report 18547755 (Version 2)
Quarter: 2020Q4

REPORT INFORMATION
  Report Type: Spontaneous
  Country: FR (occurrence: FR)
  Receive Date: 20201125
  Receipt Date: 20201203
  Transmission Date: 20210114
  Serious: Yes (Hospitalization, Other)
  Sender: FDA-Public Use
  Company Number: FR-B.I. PHARMACEUTICALS,INC./RIDGEFIELD-2020-BI-062559

PATIENT
  Age: 72 Year
  Sex: Male
  Weight: 86 kg

DRUGS (2)
  1. GADOLINIUM [Suspect]
     Active Substance: GADOLINIUM
     Indication: SCAN MYOCARDIAL PERFUSION
     Route: 042
  2. PERSANTINE [Suspect]
     Active Substance: DIPYRIDAMOLE
     Indication: SCAN MYOCARDIAL PERFUSION
     Route: 042

REACTIONS (3)
  - Hypotension [Recovered/Resolved]
  - Bronchospasm [Recovered/Resolved]
  - Dermatitis exfoliative generalised [Recovered/Resolved]

NARRATIVE: CASE EVENT DATE: 20191022
